FAERS Safety Report 16571655 (Version 1)
Quarter: 2019Q3

REPORT INFORMATION
  Report Type: Spontaneous
  Country: DE (occurrence: DE)
  Receive Date: 20190715
  Receipt Date: 20190715
  Transmission Date: 20191004
  Serious: Yes (Hospitalization, Other)
  Sender: FDA-Public Use
  Company Number: DE-PFIZER INC-2019297492

PATIENT
  Age: 34 Year
  Sex: Male

DRUGS (11)
  1. VENLAFAXINE HCL [Suspect]
     Active Substance: VENLAFAXINE HYDROCHLORIDE
     Dosage: UNK
     Route: 048
  2. VENLAFAXINE HCL [Suspect]
     Active Substance: VENLAFAXINE HYDROCHLORIDE
     Indication: PSYCHOTIC DISORDER
     Dosage: 150 MILLIGRAM, QD
     Route: 048
     Dates: start: 2007
  3. PANTOPRAZOL [PANTOPRAZOLE] [Concomitant]
     Active Substance: PANTOPRAZOLE
     Dosage: 40 MILLIGRAM, QD
     Route: 048
  4. RISPERIDON [Concomitant]
     Active Substance: RISPERIDONE
     Indication: PSYCHOTIC DISORDER
     Dosage: 1.5 MILLIGRAM, BID
     Route: 048
     Dates: start: 2011
  5. METOPROLOL. [Concomitant]
     Active Substance: METOPROLOL
     Dosage: 47.5 MILLIGRAM, BID
     Route: 048
  6. CLOZAPINE MYLAN [Suspect]
     Active Substance: CLOZAPINE
     Dosage: UNK
     Route: 048
  7. AMLODIPINE [Concomitant]
     Active Substance: AMLODIPINE BESYLATE
     Dosage: 5 MILLIGRAM, BID
     Route: 048
  8. TORASEMID [Concomitant]
     Active Substance: TORSEMIDE
     Dosage: 10 MILLIGRAM, QD
     Route: 048
  9. CLOZAPINE MYLAN [Suspect]
     Active Substance: CLOZAPINE
     Indication: PSYCHOTIC DISORDER
     Dosage: UNK, 3X/DAY
     Route: 048
  10. CLOZAPINE MYLAN [Suspect]
     Active Substance: CLOZAPINE
     Dosage: 25 MG, 2X/DAY
     Route: 048
     Dates: start: 2007
  11. LORAZEPAM. [Concomitant]
     Active Substance: LORAZEPAM
     Indication: PSYCHOTIC DISORDER
     Dosage: 1 MILLIGRAM, QD
     Route: 048
     Dates: start: 2007

REACTIONS (4)
  - Product use in unapproved indication [Unknown]
  - Nephrotic syndrome [Unknown]
  - Lupus-like syndrome [Unknown]
  - Off label use [Unknown]

NARRATIVE: CASE EVENT DATE: 2007
